FAERS Safety Report 20462748 (Version 2)
Quarter: 2022Q1

REPORT INFORMATION
  Report Type: Spontaneous
  Country: SY (occurrence: SY)
  Receive Date: 20220211
  Receipt Date: 20220211
  Transmission Date: 20220423
  Serious: Yes (Other)
  Sender: FDA-Public Use
  Company Number: SY-LUPIN PHARMACEUTICALS INC.-2022-01871

PATIENT
  Age: 13 Year
  Sex: Male
  Weight: 42 kg

DRUGS (10)
  1. HYDROCORTISONE [Suspect]
     Active Substance: HYDROCORTISONE
     Indication: Colitis ulcerative
     Dosage: 300 MILLIGRAM, QD (300MG/DAY IN DIVIDED DOSES EVERY 8HOURS)
     Route: 065
  2. PREDNISONE [Suspect]
     Active Substance: PREDNISONE
     Indication: Colitis ulcerative
     Dosage: 1 MG/KG ONCE DAILY (UP TO 40MG DURING FLARES THEN TAPERING)
     Route: 065
  3. PREDNISONE [Suspect]
     Active Substance: PREDNISONE
     Dosage: UNK 1 MG/KG ONCE DAILY UP TO 40MG DURING FLARES THEN TAPERING
     Route: 065
  4. INFLIXIMAB [Suspect]
     Active Substance: INFLIXIMAB
     Indication: Colitis ulcerative
     Dosage: 5 MILLIGRAM/KILOGRAM (INDUCTION DOSE OF 5MG/KG AT 0, 2, AND 6 WEEKS)
     Route: 065
  5. INFLIXIMAB [Suspect]
     Active Substance: INFLIXIMAB
     Dosage: 5 MILLIGRAM/KILOGRAM (FOLLOWED BY 5MG/KG EVERY EIGHT WEEKS  )
     Route: 065
  6. GOLIMUMAB [Concomitant]
     Active Substance: GOLIMUMAB
     Indication: Colitis ulcerative
     Dosage: 200MG OF SC GOLIMUMAB IN WEEK 0 (LOADING DOSE)
     Route: 058
  7. GOLIMUMAB [Concomitant]
     Active Substance: GOLIMUMAB
     Dosage: 100MG IN WEEK 2
     Route: 058
  8. GOLIMUMAB [Concomitant]
     Active Substance: GOLIMUMAB
     Dosage: 50 MILLIGRAM FOLLOWED BY 50MG EVERY 4WEEKS
     Route: 058
  9. MESALAMINE [Concomitant]
     Active Substance: MESALAMINE
     Indication: Colitis ulcerative
     Dosage: 80 MILLIGRAM/KILOGRAM, QD
     Route: 065
  10. AZATHIOPRINE [Concomitant]
     Active Substance: AZATHIOPRINE
     Indication: Colitis ulcerative
     Dosage: UNK UP TO 2.5 MG/KG/DAY
     Route: 065

REACTIONS (1)
  - Drug ineffective [Unknown]
